FAERS Safety Report 16571922 (Version 1)
Quarter: 2019Q3

REPORT INFORMATION
  Report Type: Spontaneous
  Country: DE (occurrence: DE)
  Receive Date: 20190715
  Receipt Date: 20190715
  Transmission Date: 20191004
  Serious: Yes (Hospitalization)
  Sender: FDA-Public Use
  Company Number: DE-TEVA-2019-DE-1075684

PATIENT
  Age: 64 Year
  Sex: Male

DRUGS (13)
  1. CALCIVIT D 600MG/400I.E. [Concomitant]
     Dosage: 600|400 MG/IE, 1-0-0, TABLETS
     Route: 048
  2. DULOXETINE. [Suspect]
     Active Substance: DULOXETINE
     Dosage: 30 MG, 1-0-0, TABLET
     Route: 048
  3. METAMIZOL [Concomitant]
     Active Substance: METAMIZOLE SODIUM
     Dosage: 500 MG, 1-0-1, TABLETS
     Route: 048
  4. OXYCODONE [Suspect]
     Active Substance: OXYCODONE
     Dosage: UNTIL 29.12.2017, TABLETS
     Route: 048
  5. RAMIPRIL. [Concomitant]
     Active Substance: RAMIPRIL
     Dosage: 2.5 MG, 1-0-0, TABLETS
     Route: 048
  6. ALENDRONIC ACID [Concomitant]
     Active Substance: ALENDRONIC ACID
     Dosage: 70 MG, 1X / WEEKLY, TABLETS
     Route: 048
  7. COLECALCIFEROL [Concomitant]
     Active Substance: CHOLECALCIFEROL
     Dosage: 1000 IE, 1-0-0, TABLETS
     Route: 048
  8. VITAMIN B1 [Concomitant]
     Active Substance: THIAMINE HYDROCHLORIDE
     Dosage: 3 MG, 1-0-0, CAPSULES
     Route: 048
  9. TIOTROPIUM BROMIDE [Concomitant]
     Active Substance: TIOTROPIUM BROMIDE
     Dosage: 18 MICROGRAM , 0-0-1, DOSIERAEROSOL
     Route: 048
  10. TILIDINE W/NALOXONE [Suspect]
     Active Substance: NALOXONE HYDROCHLORIDE\TILIDINE HYDROCHLORIDE
     Dosage: 100-8 MG, 1-0-1; SINCE 29.12.2017, SUSTAINED RELEASE TABLETS
     Route: 048
  11. FOLIC ACID. [Concomitant]
     Active Substance: FOLIC ACID
     Dosage: 5 MG, 1-0-0, TABLETS
     Route: 048
  12. FORMOTEROL [Concomitant]
     Active Substance: FORMOTEROL
     Dosage: 6 MICROGRAM , 1-0-1, DOSIERAEROSOL
     Route: 048
  13. PANTOPRAZOL [Concomitant]
     Active Substance: PANTOPRAZOLE SODIUM
     Dosage: 40 MG, 1-0-0, TABLETS
     Route: 048

REACTIONS (3)
  - Confusional state [Unknown]
  - Circulatory collapse [Unknown]
  - Diarrhoea [Unknown]
